FAERS Safety Report 5347845-1 (Version None)
Quarter: 2007Q2

REPORT INFORMATION
  Report Type: 
  Country: None (occurrence: None)
  Receive Date: 20070515
  Receipt Date: 20060612
  Transmission Date: 20071010
  Serious: Yes (Hospitalization)
  Sender: FDA-Public Use
  Company Number: US200606003316

PATIENT
  Age: 89 Year
  Sex: Female
  Weight: 68.2 kg

DRUGS (23)
  1. KEFLEX [Suspect]
  2. DARVOCET-N 100 [Suspect]
  3. REMERON [Concomitant]
  4. EFFEXOR XR [Concomitant]
  5. ADVAIR DISKUS 100/50 [Concomitant]
  6. ULTRAM [Concomitant]
  7. ACETAMINOPHEN [Concomitant]
  8. DOCUSATE SODIUM (DOCUSATE SODIUM) [Concomitant]
  9. ASPIRIN [Concomitant]
  10. PEPCID [Concomitant]
  11. LOVENOX [Concomitant]
  12. PREDNISONE TAB [Concomitant]
  13. ANCEF [Concomitant]
  14. TRAZODONE HCL [Concomitant]
  15. LASIX (FUROSEMIDE, FUROSEMIDE SODIUM) [Concomitant]
  16. ALDACTONE [Concomitant]
  17. SLO-MAG (MAGNESIUM CHLORIDE ANHYDROUS) [Concomitant]
  18. PRO-BANTHINE (PROPANTHELINE BROMIDE) [Concomitant]
  19. COREG [Concomitant]
  20. BEXTRA [Concomitant]
  21. COZAAR [Concomitant]
  22. NORVASC [Concomitant]
  23. DUONEB [Concomitant]

REACTIONS (4)
  - BLOOD CREATININE DECREASED [None]
  - HIP FRACTURE [None]
  - HYPONATRAEMIA [None]
  - INFECTION [None]
